FAERS Safety Report 5721392-7 (Version None)
Quarter: 2008Q2

REPORT INFORMATION
  Report Type: 
  Country: None (occurrence: None)
  Receive Date: 20080429
  Receipt Date: 20080423
  Transmission Date: 20081010
  Serious: Yes (Hospitalization)
  Sender: FDA-Public Use
  Company Number: US-SANOFI-SYNTHELABO-A03200801555

PATIENT
  Sex: Female
  Weight: 58.96 kg

DRUGS (6)
  1. PLAVIX [Suspect]
     Indication: CORONARY ARTERIAL STENT INSERTION
     Route: 048
     Dates: start: 20060101, end: 20071201
  2. PLAVIX [Suspect]
     Route: 048
     Dates: start: 20071201, end: 20080101
  3. PLAVIX [Suspect]
     Route: 048
     Dates: start: 20080101, end: 20080201
  4. PLAVIX [Suspect]
     Route: 048
     Dates: start: 20080418, end: 20080401
  5. PREVACID [Concomitant]
     Indication: DRUG USE FOR UNKNOWN INDICATION
     Dosage: UNK
     Route: 065
  6. ANACIN [Concomitant]
     Indication: DRUG USE FOR UNKNOWN INDICATION
     Route: 065

REACTIONS (7)
  - ARTHRALGIA [None]
  - ARTHRITIS INFECTIVE [None]
  - CONTUSION [None]
  - JOINT SWELLING [None]
  - PAIN [None]
  - PAIN IN EXTREMITY [None]
  - THROMBOSIS [None]
